FAERS Safety Report 4529772-2 (Version None)
Quarter: 2004Q4

REPORT INFORMATION
  Report Type: 
  Country: None (occurrence: None)
  Receive Date: 20041126
  Receipt Date: 20040818
  Transmission Date: 20050328
  Serious: No
  Sender: FDA-Public Use
  Company Number: SU-2004-002635

PATIENT
  Age: 77 Year
  Sex: Female
  Weight: 54.4316 kg

DRUGS (6)
  1. BENICAR [Suspect]
     Indication: HYPERTENSION
     Dosage: 20 MG QD PO
     Route: 048
     Dates: start: 20040303, end: 20040628
  2. EVISTA [Concomitant]
  3. PREDNISONE TAB [Concomitant]
  4. ATENOLOL [Concomitant]
  5. GLIPIZIDE [Concomitant]
  6. FOSAMAX [Concomitant]

REACTIONS (3)
  - BLOOD CREATINE INCREASED [None]
  - BLOOD POTASSIUM INCREASED [None]
  - RENAL FAILURE ACUTE [None]
